FAERS Safety Report 7989009 (Version 2)
Quarter: 2012Q4

REPORT INFORMATION
  Report Type: 
  Country: CA (occurrence: CA)
  Receive Date: 20110613
  Receipt Date: 20121109
  Transmission Date: 20130627
  Serious: Yes (Other)
  Sender: FDA-Public Use
  Company Number: PHMT2006CA00925

PATIENT
  Sex: Male
  Weight: 86.9 kg

DRUGS (3)
  1. SANDOSTATIN LAR [Suspect]
     Indication: CARCINOID TUMOUR
     Dosage: 20 mg, once a month
     Route: 030
     Dates: start: 20000820
  2. SANDOSTATIN [Suspect]
     Route: 058
  3. AMLODIPINE BESILATE [Concomitant]

REACTIONS (13)
  - Hypotension [Unknown]
  - Renal function test abnormal [Unknown]
  - Metastases to liver [Not Recovered/Not Resolved]
  - Metastases to bone [Not Recovered/Not Resolved]
  - Malignant neoplasm progression [Not Recovered/Not Resolved]
  - Pain [Unknown]
  - Flushing [Unknown]
  - Chest pain [Unknown]
  - Injection site reaction [Unknown]
  - Malaise [Unknown]
  - Dyspnoea [Unknown]
  - Fatigue [Unknown]
  - Diarrhoea [Unknown]
